FAERS Safety Report 6768131-9 (Version None)
Quarter: 2010Q2

REPORT INFORMATION
  Report Type: 
  Country: None (occurrence: None)
  Receive Date: 20100614
  Receipt Date: 20100603
  Transmission Date: 20101027
  Serious: Yes (Other)
  Sender: FDA-Public Use
  Company Number: CN-JNJFOC-20100503341

PATIENT

DRUGS (2)
  1. REMICADE [Suspect]
     Indication: RHEUMATOID ARTHRITIS
     Dosage: WEEK 0, 2 AND 6
     Route: 042
  2. REMICADE [Suspect]
     Indication: CROHN'S DISEASE
     Dosage: WEEK 0, 2 AND 6
     Route: 042

REACTIONS (4)
  - CROHN'S DISEASE [None]
  - INTESTINAL FISTULA [None]
  - INTESTINAL PERFORATION [None]
  - RHEUMATOID ARTHRITIS [None]
